FAERS Safety Report 14451640 (Version 5)
Quarter: 2019Q2

REPORT INFORMATION
  Report Type: Spontaneous
  Country: US (occurrence: US)
  Receive Date: 20180129
  Receipt Date: 20190531
  Transmission Date: 20190711
  Serious: No
  Sender: FDA-Public Use
  Company Number: US-PFIZER INC-2018034913

PATIENT
  Age: 49 Year
  Sex: Female
  Weight: 81.63 kg

DRUGS (5)
  1. RELPAX [Suspect]
     Active Substance: ELETRIPTAN HYDROBROMIDE
     Indication: MIGRAINE
     Dosage: 40 MG, TWICE DAILY (AS NEEDED)
     Route: 048
  2. RELPAX [Suspect]
     Active Substance: ELETRIPTAN HYDROBROMIDE
     Dosage: 20 MG, UNK
     Route: 048
  3. RELPAX [Suspect]
     Active Substance: ELETRIPTAN HYDROBROMIDE
     Dosage: 40 MG, AS NEEDED
     Route: 048
  4. LISINOPRIL. [Concomitant]
     Active Substance: LISINOPRIL
     Indication: MIGRAINE
     Dosage: 20 MG, 1X/DAY
     Route: 048
     Dates: start: 2004
  5. LISINOPRIL. [Concomitant]
     Active Substance: LISINOPRIL
     Indication: HYPERTENSION

REACTIONS (1)
  - Drug ineffective [Recovered/Resolved]
